FAERS Safety Report 23258966 (Version 1)
Quarter: 2023Q4

REPORT INFORMATION
  Report Type: Spontaneous
  Country: IN (occurrence: IN)
  Receive Date: 20231204
  Receipt Date: 20231204
  Transmission Date: 20240110
  Serious: Yes (Other)
  Sender: FDA-Public Use
  Company Number: IN-VIRTUS PHARMACEUTICALS, LLC-2023VTS00042

PATIENT
  Age: 26 Year
  Sex: Female

DRUGS (1)
  1. PROGESTERONE [Suspect]
     Active Substance: PROGESTERONE
     Indication: Amenorrhoea
     Dosage: MICRONIZED TABLET; 200 MG ^1-0-0-^

REACTIONS (2)
  - Cholestasis of pregnancy [Recovering/Resolving]
  - Contraindicated product administered [None]
